FAERS Safety Report 7511297-3 (Version None)
Quarter: 2011Q2

REPORT INFORMATION
  Report Type: 
  Country: None (occurrence: None)
  Receive Date: 20110531
  Receipt Date: 20110516
  Transmission Date: 20111010
  Serious: Yes (Other)
  Sender: FDA-Public Use
  Company Number: US-BAYER-201030498NA

PATIENT
  Age: 16 Year
  Sex: Female
  Weight: 65.76 kg

DRUGS (10)
  1. DEPO-PROVERA [Concomitant]
     Dosage: UNK
     Dates: start: 20060918, end: 20061025
  2. PROZAC [Concomitant]
     Indication: PAIN
  3. PROTONIX [Concomitant]
     Dosage: UNK
     Dates: start: 20060918
  4. DEPO-PROVERA [Concomitant]
     Dosage: UNK
     Dates: start: 20061025
  5. HYDROCODONE BITARTRATE [Concomitant]
     Indication: PAIN
     Dosage: 1 DF, QD
  6. YAZ [Suspect]
     Indication: PRODUCT USED FOR UNKNOWN INDICATION
     Dosage: UNK UNK, UNK
     Route: 048
     Dates: start: 20060201
  7. YASMIN [Suspect]
     Indication: PRODUCT USED FOR UNKNOWN INDICATION
     Dosage: UNK
     Route: 048
     Dates: start: 20060201
  8. PRILOSEC [Concomitant]
     Dosage: UNK
     Dates: start: 20060918
  9. LORTAB [Concomitant]
     Indication: ABDOMINAL PAIN
     Dosage: 5 MG, Q4HR
     Route: 048
     Dates: start: 20060918
  10. DARVOCET [Concomitant]
     Indication: ABDOMINAL PAIN

REACTIONS (3)
  - BILIARY DYSKINESIA [None]
  - CHOLECYSTECTOMY [None]
  - CHOLECYSTITIS [None]
